FAERS Safety Report 8258940-1 (Version None)
Quarter: 2012Q2

REPORT INFORMATION
  Report Type: 
  Country: None (occurrence: None)
  Receive Date: 20120404
  Receipt Date: 20120322
  Transmission Date: 20120825
  Serious: Yes (Hospitalization)
  Sender: FDA-Public Use
  Company Number: DE-ROCHE-1051781

PATIENT
  Age: 75 Year
  Weight: 98 kg

DRUGS (3)
  1. CETUXIMAB [Concomitant]
  2. XELODA [Suspect]
     Indication: PRODUCT USED FOR UNKNOWN INDICATION
     Dates: start: 20110504, end: 20110517
  3. IRINOTECAN HCL [Concomitant]

REACTIONS (8)
  - NEUTROPENIA [None]
  - GENERAL PHYSICAL HEALTH DETERIORATION [None]
  - ENTERITIS [None]
  - CHILLS [None]
  - DIARRHOEA [None]
  - PYREXIA [None]
  - ESCHERICHIA SEPSIS [None]
  - MUCOSAL INFLAMMATION [None]
